FAERS Safety Report 18528572 (Version 2)
Quarter: 2020Q4

REPORT INFORMATION
  Report Type: Spontaneous
  Country: JP (occurrence: JP)
  Receive Date: 20201120
  Receipt Date: 20201208
  Transmission Date: 20210114
  Serious: Yes (Hospitalization, Other)
  Sender: FDA-Public Use
  Company Number: JP-PFIZER INC-2020386437

PATIENT
  Age: 79 Year
  Sex: Female

DRUGS (9)
  1. ROSUVASTATIN OD DSEP [Concomitant]
     Dosage: 2.5 MG, 1X/DAY (ONE TABLET, ONCE A DAY)
     Route: 048
  2. LYRICA [Suspect]
     Active Substance: PREGABALIN
     Indication: POST HERPETIC NEURALGIA
     Dosage: 175 MG, DAILY (75 MG IN THE MORNING AND 100 MG IN THE EVENING)
     Route: 048
     Dates: start: 201901
  3. TRAMCET [Suspect]
     Active Substance: ACETAMINOPHEN\TRAMADOL
     Dosage: UNK
     Route: 048
  4. NEUROTROPIN [Suspect]
     Active Substance: NEUROTROPIN
     Dosage: 4 DF, 2X/DAY
     Route: 048
     Dates: start: 201911
  5. TAKELDA [Concomitant]
     Active Substance: ASPIRIN\LANSOPRAZOLE
     Dosage: 1 DF, 1X/DAY (ONE TABLET ONCE A DAY)
     Route: 048
  6. NORITREN [Suspect]
     Active Substance: NORTRIPTYLINE HYDROCHLORIDE
     Indication: POST HERPETIC NEURALGIA
     Dosage: 10 MG, 1X/DAY
     Route: 048
     Dates: start: 202001
  7. LIXIANA OD [Concomitant]
     Active Substance: EDOXABAN TOSYLATE
     Dosage: 30 MG, 1X/DAY (ONE TABLET, ONCE A DAY)
     Route: 048
  8. FUROSEMIDE. [Concomitant]
     Active Substance: FUROSEMIDE
     Dosage: 10 MG, 1X/DAY (ONE TABLET, ONCE A DAY)
     Route: 048
  9. TELMISARTAN DSEP [Concomitant]
     Dosage: 40 MG, 1X/DAY (ONE TABLET, ONCE A DAY)
     Route: 048

REACTIONS (5)
  - Blood pressure decreased [Unknown]
  - Dizziness [Recovered/Resolved]
  - Loss of consciousness [Recovered/Resolved]
  - Pneumonia [Unknown]
  - Blood creatine phosphokinase decreased [Unknown]

NARRATIVE: CASE EVENT DATE: 2020
